FAERS Safety Report 17025102 (Version 1)
Quarter: 2019Q4

REPORT INFORMATION
  Report Type: Spontaneous
  Country: JP (occurrence: JP)
  Receive Date: 20191113
  Receipt Date: 20191113
  Transmission Date: 20200122
  Serious: Yes (Hospitalization)
  Sender: FDA-Public Use
  Company Number: JP-MEDEXUS PHARMA, INC.-2019MED00252

PATIENT
  Age: 83 Year
  Sex: Female

DRUGS (1)
  1. METHOTREXATE. [Suspect]
     Active Substance: METHOTREXATE
     Indication: RHEUMATOID ARTHRITIS
     Dosage: 6 MG, 1X/WEEK
     Route: 065

REACTIONS (3)
  - Lymphoproliferative disorder [Recovered/Resolved]
  - Pericardial effusion [Recovered/Resolved]
  - Atrioventricular block complete [Recovered/Resolved]
